FAERS Safety Report 9405776 (Version 3)
Quarter: 2013Q4

REPORT INFORMATION
  Report Type: Spontaneous
  Country: US (occurrence: US)
  Receive Date: 20130717
  Receipt Date: 20131023
  Transmission Date: 20140711
  Serious: Yes (Hospitalization)
  Sender: FDA-Public Use
  Company Number: US-GLAXOSMITHKLINE-A1001449A

PATIENT
  Age: 53 Year
  Sex: Male
  Weight: 121.4 kg

DRUGS (2)
  1. AVANDIA [Suspect]
     Indication: DIABETES MELLITUS
     Dosage: 8MG PER DAY
     Route: 048
     Dates: start: 20041101, end: 2013
  2. AVANDARYL [Suspect]
     Indication: DIABETES MELLITUS
     Route: 048
     Dates: start: 20070328, end: 20111105

REACTIONS (9)
  - Coronary artery disease [Unknown]
  - Angina unstable [Unknown]
  - Cardiac failure congestive [Unknown]
  - Coronary artery bypass [Unknown]
  - Atrial fibrillation [Unknown]
  - Arrhythmia supraventricular [Unknown]
  - Cardiac disorder [Unknown]
  - Angina pectoris [Unknown]
  - Cardiomegaly [Unknown]
